FAERS Safety Report 5572327-1 (Version None)
Quarter: 2007Q4

REPORT INFORMATION
  Report Type: 
  Country: None (occurrence: None)
  Receive Date: 20071219
  Receipt Date: 20070530
  Transmission Date: 20080405
  Serious: Yes (Hospitalization, Other)
  Sender: FDA-Public Use
  Company Number: 64917

PATIENT
  Sex: Female

DRUGS (10)
  1. ACETAMINOPHEN [Suspect]
     Dosage: 1G/ 4/1DAYS/ ORAL
     Route: 048
  2. SODIUM CITRATE [Suspect]
     Dosage: 3.7 ML
  3. AMLODIPINE [Concomitant]
  4. CANDESARTAN 4MG [Concomitant]
  5. CLOPIDOGREL [Concomitant]
  6. DANAPAROID SODIUM 3000IU [Concomitant]
  7. INSULIN GLARGINE 18IU [Concomitant]
  8. NOVORAPID 4IU [Concomitant]
  9. SEVELAMER 2400MG [Concomitant]
  10. SIMVASTATIN [Concomitant]

REACTIONS (2)
  - HAEMATEMESIS [None]
  - MALLORY-WEISS SYNDROME [None]
